FAERS Safety Report 7198117-4 (Version None)
Quarter: 2010Q4

REPORT INFORMATION
  Report Type: 
  Country: None (occurrence: None)
  Receive Date: 20101227
  Receipt Date: 20101216
  Transmission Date: 20110411
  Serious: Yes (Other)
  Sender: FDA-Public Use
  Company Number: US-BAYER-2010-005851

PATIENT
  Sex: Female

DRUGS (1)
  1. MIRENA [Suspect]
     Indication: CONTRACEPTION
     Dosage: UNK
     Route: 015
     Dates: start: 20080601, end: 20090401

REACTIONS (4)
  - FOOD ALLERGY [None]
  - PRECANCEROUS CELLS PRESENT [None]
  - PSORIASIS [None]
  - UTERINE LEIOMYOMA [None]
